FAERS Safety Report 4332539-1 (Version None)
Quarter: 2004Q1

REPORT INFORMATION
  Report Type: 
  Country: None (occurrence: None)
  Receive Date: 20040330
  Receipt Date: 20040317
  Transmission Date: 20041129
  Serious: Yes (Hospitalization)
  Sender: FDA-Public Use
  Company Number: BE-JNJFOC-20040304161

PATIENT
  Age: 86 Year
  Sex: Female

DRUGS (6)
  1. REMICADE [Suspect]
     Indication: RHEUMATOID ARTHRITIS
     Dosage: 3 MG/KG, INTRAVENOUS
     Route: 042
     Dates: start: 20020917, end: 20031125
  2. METHOTREXATE [Suspect]
     Indication: RHEUMATOID ARTHRITIS
  3. CELEBREX [Concomitant]
  4. LORAZEPAM [Concomitant]
  5. BUMETANIDE [Concomitant]
  6. ALDACTONE [Concomitant]

REACTIONS (21)
  - ABDOMINAL PAIN [None]
  - BLOOD CHLORIDE DECREASED [None]
  - BLOOD ELECTROLYTES ABNORMAL [None]
  - BLOOD LACTATE DEHYDROGENASE INCREASED [None]
  - BLOOD POTASSIUM INCREASED [None]
  - BLOOD UREA INCREASED [None]
  - DRUG INTERACTION [None]
  - ESCHERICHIA INFECTION [None]
  - GASTRITIS ATROPHIC [None]
  - GLUCOSE URINE PRESENT [None]
  - HAEMATURIA [None]
  - HERNIA [None]
  - HYPONATRAEMIA [None]
  - LIPASE INCREASED [None]
  - NAUSEA [None]
  - PANCREATIC CYST [None]
  - PLATELET COUNT DECREASED [None]
  - URINARY RETENTION [None]
  - URINARY TRACT INFECTION [None]
  - VOMITING [None]
  - WHITE BLOOD CELL COUNT INCREASED [None]
